FAERS Safety Report 22217737 (Version 3)
Quarter: 2023Q2

REPORT INFORMATION
  Report Type: Report from Study
  Country: US (occurrence: US)
  Receive Date: 20230417
  Receipt Date: 20230619
  Transmission Date: 20230722
  Serious: Yes (Other)
  Sender: FDA-Public Use
  Company Number: US-002147023-NVSC2023US084447

PATIENT
  Sex: Female

DRUGS (2)
  1. COSENTYX [Suspect]
     Active Substance: SECUKINUMAB
     Indication: Psoriasis
     Dosage: 300 MG, QMO ( WAS ON COSENTYX FOR ABOUT SIX MONTHS)
     Route: 058
     Dates: start: 201910, end: 2020
  2. KETOCONAZOLE [Suspect]
     Active Substance: KETOCONAZOLE
     Indication: Coccidioidomycosis
     Dosage: UNK
     Route: 065

REACTIONS (3)
  - Coccidioidomycosis [Unknown]
  - Acute hepatic failure [Unknown]
  - Mesothelioma [Recovering/Resolving]
